FAERS Safety Report 10367965 (Version 1)
Quarter: 2014Q3

REPORT INFORMATION
  Report Type: Spontaneous
  Country: CN (occurrence: None)
  Receive Date: 20140805
  Receipt Date: 20140805
  Transmission Date: 20150326
  Serious: Yes (Hospitalization)
  Sender: FDA-Public Use
  Company Number: 2014AMD00054

PATIENT
  Age: 6 Year
  Sex: Female

DRUGS (1)
  1. ZENTEL (ALBENDAZOLE) TABLET [Suspect]
     Active Substance: ALBENDAZOLE
     Indication: ASCARIASIS
     Dosage: 2 TABLETS
     Route: 048
     Dates: start: 20131010, end: 20131011

REACTIONS (4)
  - Decreased appetite [None]
  - Abdominal pain [None]
  - Cyanosis [None]
  - Vomiting [None]

NARRATIVE: CASE EVENT DATE: 20131010
